FAERS Safety Report 9178004 (Version 2)
Quarter: 2012Q4

REPORT INFORMATION
  Report Type: 
  Country: BR (occurrence: BR)
  Receive Date: 20121018
  Receipt Date: 20121029
  Transmission Date: 20130627
  Serious: Yes (Hospitalization, Other)
  Sender: FDA-Public Use
  Company Number: BR-CTI_01495_2012

PATIENT
  Age: 65 Year
  Sex: Female

DRUGS (3)
  1. FACTIVE [Suspect]
     Indication: INFLUENZA
     Route: 048
     Dates: start: 20120910, end: 20120914
  2. FACTIVE [Suspect]
     Indication: NASOPHARYNGITIS
     Route: 048
     Dates: start: 20120910, end: 20120914
  3. FACTIVE [Suspect]
     Indication: COUGH
     Route: 048
     Dates: start: 20120910, end: 20120914

REACTIONS (7)
  - Off label use [Recovered/Resolved]
  - Muscular weakness [Recovered/Resolved]
  - Erythema [Recovering/Resolving]
  - Hypersensitivity [Recovered/Resolved]
  - Rash [Recovered/Resolved]
  - Toxic skin eruption [Recovering/Resolving]
  - Pruritus [Recovering/Resolving]
